FAERS Safety Report 16210848 (Version 1)
Quarter: 2019Q2

REPORT INFORMATION
  Report Type: Spontaneous
  Country: ES (occurrence: ES)
  Receive Date: 20190418
  Receipt Date: 20190418
  Transmission Date: 20190711
  Serious: Yes (Other)
  Sender: FDA-Public Use
  Company Number: ES-SA-2019SA104363

PATIENT
  Age: 73 Year
  Sex: Female

DRUGS (1)
  1. ENOXAPARIN SODIUM. [Suspect]
     Active Substance: ENOXAPARIN SODIUM
     Indication: CHOLANGITIS ACUTE
     Dosage: UNK

REACTIONS (7)
  - Tachycardia [Unknown]
  - Anaemia [Unknown]
  - Anuria [Unknown]
  - Hydronephrosis [Unknown]
  - Abdominal pain [Unknown]
  - Abdominal wall haematoma [Unknown]
  - Renal impairment [Unknown]
